FAERS Safety Report 6084957-1 (Version None)
Quarter: 2009Q1

REPORT INFORMATION
  Report Type: 
  Country: None (occurrence: None)
  Receive Date: 20090220
  Receipt Date: 20090213
  Transmission Date: 20090719
  Serious: Yes (Other)
  Sender: FDA-Public Use
  Company Number: US-ALLERGAN-0901942US

PATIENT
  Sex: Female

DRUGS (5)
  1. SANCTURA XR [Suspect]
     Indication: MICTURITION URGENCY
     Dosage: 60 MG, SINGLE
     Route: 048
     Dates: start: 20090206, end: 20090206
  2. PLAVIX [Concomitant]
  3. TAMBOCOR [Concomitant]
  4. ASPIRIN [Concomitant]
  5. CALAN [Concomitant]

REACTIONS (3)
  - CHAPPED LIPS [None]
  - DRY MOUTH [None]
  - DYSURIA [None]
